FAERS Safety Report 8951026 (Version 1)
Quarter: 2012Q4

REPORT INFORMATION
  Report Type: 
  Country: US (occurrence: US)
  Receive Date: 20121207
  Receipt Date: 20121207
  Transmission Date: 20130627
  Serious: Yes (Other)
  Sender: FDA-Public Use
  Company Number: US-PFIZER INC-2012305058

PATIENT
  Sex: Male

DRUGS (1)
  1. DOSTINEX [Suspect]
     Dosage: 0.5 mg, 2x/day

REACTIONS (1)
  - Neoplasm [Unknown]
